FAERS Safety Report 9148051 (Version 2)
Quarter: 2013Q2

REPORT INFORMATION
  Report Type: Spontaneous
  Country: US (occurrence: US)
  Receive Date: 20130308
  Receipt Date: 20130417
  Transmission Date: 20140414
  Serious: No
  Sender: FDA-Public Use
  Company Number: US-AMGEN-USASP2013014124

PATIENT
  Age: 77 Year
  Sex: Female

DRUGS (7)
  1. PROLIA [Suspect]
     Indication: OSTEOPOROSIS
     Dosage: UNK
  2. DORZOLAMIDE HCL AND TIMOLOL MALEATE [Concomitant]
     Dosage: 22.3-6.8MH/ML
  3. LATANOPROST [Concomitant]
     Dosage: 0.005% , TAKE 1 DROP ONCE A DAY FOR DAYS
  4. GABAPENTIN [Concomitant]
     Dosage: 100 MG, QD
  5. IPRATROPIUM BROMIDE AND ALBUTEROL SULFATE [Concomitant]
     Dosage: 3 MG/ML, TAKE 1 SPRAY(S) ONCE A DAY
  6. VOLTAREN                           /00372301/ [Concomitant]
     Dosage: APPLY 1 APPLICATION ONCE A DAY AS NEEDED
  7. HYDROCODONE/ACETAMINOPHEN          /00607101/ [Concomitant]
     Dosage: 7.5-500 MG ; TAKE 1 TABLET EVERY 8 HOURS FOR 10 DAYS

REACTIONS (3)
  - Respiratory tract congestion [Unknown]
  - Productive cough [Unknown]
  - Dyspnoea [Unknown]
